FAERS Safety Report 5105607-4 (Version None)
Quarter: 2006Q3

REPORT INFORMATION
  Report Type: 
  Country: None (occurrence: None)
  Receive Date: 20060915
  Receipt Date: 20060626
  Transmission Date: 20061208
  Serious: Yes (Death, Hospitalization)
  Sender: FDA-Public Use
  Company Number: US-ROCHE-458598

PATIENT
  Age: 51 Year
  Sex: Female

DRUGS (2)
  1. PEGASYS [Suspect]
     Dosage: DRUG STRENGTH: 180 MICROGRAMS/0.5 MILLILITRES.
     Route: 058
     Dates: start: 20060414, end: 20060615
  2. RIBAVIRIN [Suspect]
     Route: 048
     Dates: start: 20060414, end: 20060615

REACTIONS (3)
  - DEATH [None]
  - PANCREATITIS [None]
  - RENAL FAILURE [None]
